FAERS Safety Report 11200249 (Version 1)
Quarter: 2015Q2

REPORT INFORMATION
  Report Type: Spontaneous
  Country: FR (occurrence: FR)
  Receive Date: 20150618
  Receipt Date: 20150618
  Transmission Date: 20150821
  Serious: Yes (Hospitalization)
  Sender: FDA-Public Use
  Company Number: FR-SA-2015SA081453

PATIENT
  Age: 62 Year
  Sex: Male

DRUGS (10)
  1. MONO-TILDIEM [Concomitant]
     Active Substance: DILTIAZEM HYDROCHLORIDE
     Dosage: STRENGTH: 200 MG EXTENDED TABLET
     Route: 048
  2. ARAVA [Suspect]
     Active Substance: LEFLUNOMIDE
     Indication: PSORIATIC ARTHROPATHY
     Route: 048
     Dates: start: 201304, end: 201406
  3. ZAMUDOL [Concomitant]
     Active Substance: TRAMADOL HYDROCHLORIDE
  4. KARDEGIC [Concomitant]
     Active Substance: ASPIRIN LYSINE
     Dosage: STRENGTH: 75 MG
     Route: 048
  5. LASILIX FAIBLE [Concomitant]
     Active Substance: FUROSEMIDE
     Dosage: STRENGTH: 20 MG TABLET
  6. ZYMAD [Concomitant]
     Active Substance: CHOLECALCIFEROL
     Dosage: STRENGTH: 10000 IU
  7. METHOTREXATE [Concomitant]
     Active Substance: METHOTREXATE
  8. CORTANCYL [Concomitant]
     Active Substance: PREDNISONE
  9. OLMETEC [Concomitant]
     Active Substance: OLMESARTAN MEDOXOMIL
     Dosage: STRENGTH: 10 MG TABLET
     Route: 048
  10. ARAVA [Suspect]
     Active Substance: LEFLUNOMIDE
     Indication: PSORIATIC ARTHROPATHY
     Route: 048
     Dates: start: 201406, end: 201410

REACTIONS (2)
  - Renal failure [Recovering/Resolving]
  - Skin ulcer [Recovering/Resolving]

NARRATIVE: CASE EVENT DATE: 201404
